FAERS Safety Report 13934388 (Version 5)
Quarter: 2018Q1

REPORT INFORMATION
  Report Type: Spontaneous
  Country: DE (occurrence: DE)
  Receive Date: 20170905
  Receipt Date: 20180223
  Transmission Date: 20180508
  Serious: Yes (Death, Hospitalization)
  Sender: FDA-Public Use
  Company Number: DE-ROCHE-1981258

PATIENT
  Age: 60 Year
  Sex: Female
  Weight: 77 kg

DRUGS (6)
  1. CARBOPLATIN. [Concomitant]
     Active Substance: CARBOPLATIN
     Indication: HER-2 POSITIVE BREAST CANCER
     Route: 065
     Dates: start: 20170814
  2. PERJETA [Suspect]
     Active Substance: PERTUZUMAB
     Indication: HER-2 POSITIVE BREAST CANCER
     Dosage: 420 MG/14 ML
     Route: 065
     Dates: start: 20170814
  3. DOCETAXEL. [Concomitant]
     Active Substance: DOCETAXEL
     Indication: HER-2 POSITIVE BREAST CANCER
     Route: 065
     Dates: start: 20170814
  4. HERCEPTIN [Suspect]
     Active Substance: TRASTUZUMAB
     Route: 042
  5. VESIKUR [Concomitant]
     Active Substance: SOLIFENACIN SUCCINATE
  6. HERCEPTIN [Suspect]
     Active Substance: TRASTUZUMAB
     Indication: HER-2 POSITIVE BREAST CANCER
     Dosage: INITIAL DOSE
     Route: 042
     Dates: start: 20170814

REACTIONS (8)
  - Chest pain [Fatal]
  - Blood pressure increased [Fatal]
  - Hypertension [Fatal]
  - Respiratory distress [Fatal]
  - Dyspnoea [Fatal]
  - Chills [Fatal]
  - Nausea [Fatal]
  - Chest discomfort [Fatal]

NARRATIVE: CASE EVENT DATE: 20170814
